FAERS Safety Report 23539927 (Version 1)
Quarter: 2024Q1

REPORT INFORMATION
  Report Type: Spontaneous
  Country: FI (occurrence: FI)
  Receive Date: 20240219
  Receipt Date: 20240219
  Transmission Date: 20240410
  Serious: Yes (Hospitalization, Other)
  Sender: FDA-Public Use
  Company Number: FI-BIOVITRUM-2024-FI-001341

PATIENT
  Age: 44 Year
  Sex: Female

DRUGS (4)
  1. GAMIFANT [Suspect]
     Active Substance: EMAPALUMAB-LZSG
     Indication: Haemophagocytic lymphohistiocytosis
     Route: 065
     Dates: start: 20231228, end: 20240116
  2. GAMIFANT [Suspect]
     Active Substance: EMAPALUMAB-LZSG
     Route: 065
     Dates: start: 20240119, end: 20240123
  3. GAMIFANT [Suspect]
     Active Substance: EMAPALUMAB-LZSG
     Route: 065
     Dates: start: 20240126
  4. GAMIFANT [Suspect]
     Active Substance: EMAPALUMAB-LZSG
     Route: 065
     Dates: start: 20240130

REACTIONS (3)
  - Hypoxia [Unknown]
  - Lysinuric protein intolerance [Unknown]
  - Haemophagocytic lymphohistiocytosis [Unknown]

NARRATIVE: CASE EVENT DATE: 20231228
